FAERS Safety Report 7489906-7 (Version None)
Quarter: 2011Q2

REPORT INFORMATION
  Report Type: 
  Country: None (occurrence: None)
  Receive Date: 20110517
  Receipt Date: 20110517
  Transmission Date: 20111010
  Serious: Yes (Life-Threatening, Other)
  Sender: FDA-Public Use
  Company Number: None

PATIENT
  Sex: Female
  Weight: 67.586 kg

DRUGS (1)
  1. RISPERDAL [Suspect]
     Indication: DEPRESSION
     Dosage: 25 MG EVERY TWO WEEKS IM
     Route: 030

REACTIONS (3)
  - DYSPHAGIA [None]
  - FOREIGN BODY [None]
  - WEIGHT DECREASED [None]
